FAERS Safety Report 16441189 (Version 1)
Quarter: 2019Q2

REPORT INFORMATION
  Report Type: Report from Study
  Country: GR (occurrence: GR)
  Receive Date: 20190617
  Receipt Date: 20190617
  Transmission Date: 20190711
  Serious: Yes (Death, Other)
  Sender: FDA-Public Use
  Company Number: GR-ASTRAZENECA-2019SE86843

PATIENT
  Age: 85 Year
  Sex: Female

DRUGS (3)
  1. HEPARIN [Interacting]
     Active Substance: HEPARIN SODIUM
     Route: 065
  2. TICAGRELOR. [Suspect]
     Active Substance: TICAGRELOR
     Indication: MYOCARDIAL INFARCTION
     Route: 048
  3. ASPIRIN. [Interacting]
     Active Substance: ASPIRIN
     Indication: MYOCARDIAL INFARCTION
     Route: 065

REACTIONS (3)
  - Septic shock [Fatal]
  - Arterial haemorrhage [Unknown]
  - Labelled drug-drug interaction medication error [Unknown]
